FAERS Safety Report 7047473-6 (Version None)
Quarter: 2010Q4

REPORT INFORMATION
  Report Type: 
  Country: None (occurrence: None)
  Receive Date: 20101015
  Receipt Date: 20101007
  Transmission Date: 20110411
  Serious: Yes (Disabling, Other)
  Sender: FDA-Public Use
  Company Number: US-TEVA-250208USA

PATIENT
  Sex: Female

DRUGS (2)
  1. ALENDRONAT SODIUM, TABLETS, 5MG, 10MG, 40MG, 35MG, 70MG [Suspect]
     Indication: OSTEOPOROSIS PROPHYLAXIS
     Dates: start: 20081001, end: 20100501
  2. ALENDRONATE SODIUM [Suspect]
     Indication: OSTEOPOROSIS PROPHYLAXIS
     Dates: start: 20020101, end: 20081001

REACTIONS (4)
  - BONE DISORDER [None]
  - FEMUR FRACTURE [None]
  - LOW TURNOVER OSTEOPATHY [None]
  - STRESS FRACTURE [None]
